FAERS Safety Report 24393969 (Version 1)
Quarter: 2024Q4

REPORT INFORMATION
  Report Type: Report from Study
  Country: US (occurrence: US)
  Receive Date: 20241003
  Receipt Date: 20241003
  Transmission Date: 20250115
  Serious: Yes (Other)
  Sender: ABBVIE
  Company Number: US-ABBVIE-5944193

PATIENT

DRUGS (1)
  1. HUMIRA [Suspect]
     Active Substance: ADALIMUMAB
     Indication: Chronic lymphocytic leukaemia
     Dosage: CITRATE FREE
     Route: 058
     Dates: start: 202309

REACTIONS (2)
  - Condition aggravated [Recovered/Resolved]
  - Stress [Recovered/Resolved]
